FAERS Safety Report 7336299-1 (Version None)
Quarter: 2011Q1

REPORT INFORMATION
  Report Type: 
  Country: None (occurrence: None)
  Receive Date: 20110307
  Receipt Date: 20110301
  Transmission Date: 20110831
  Serious: Yes (Other)
  Sender: FDA-Public Use
  Company Number: VE-PFIZER INC-2011045502

PATIENT
  Age: 71 Year
  Sex: Female

DRUGS (2)
  1. EUTHYROX [Concomitant]
     Indication: THYROID DISORDER
     Dosage: 100 UG, 1X/DAY
     Route: 048
     Dates: start: 20010101
  2. LIPITOR [Suspect]
     Indication: HYPERCHOLESTEROLAEMIA
     Dosage: 20 MG, 1X/DAY
     Route: 048
     Dates: start: 20100101, end: 20100701

REACTIONS (1)
  - LYMPHOMA [None]
